FAERS Safety Report 10891562 (Version 1)
Quarter: 2015Q1

REPORT INFORMATION
  Report Type: Spontaneous
  Country: GB (occurrence: GB)
  Receive Date: 20150306
  Receipt Date: 20150306
  Transmission Date: 20150721
  Serious: Yes (Hospitalization)
  Sender: FDA-Public Use
  Company Number: GB-BAYER-2015-030793

PATIENT
  Age: 60 Year
  Sex: Female

DRUGS (6)
  1. CIPROFLOXACIN. [Suspect]
     Active Substance: CIPROFLOXACIN
     Indication: PSEUDOMONAS INFECTION
  2. AZITHROMYCIN [Suspect]
     Active Substance: AZITHROMYCIN ANHYDROUS
     Indication: PSEUDOMONAS INFECTION
  3. FLUTICASONE [Suspect]
     Active Substance: FLUTICASONE\FLUTICASONE PROPIONATE
     Indication: PSEUDOMONAS INFECTION
     Dosage: INHALED 1 MG DAILY
  4. AMOXICILLIN. [Suspect]
     Active Substance: AMOXICILLIN
     Indication: PSEUDOMONAS INFECTION
  5. COLISTIMETHATE SODIUM [COLISTIN MESILATE SODIUM] [Suspect]
     Active Substance: COLISTIMETHATE SODIUM
     Indication: PSEUDOMONAS INFECTION
  6. OXYTETRACYCLINE [Suspect]
     Active Substance: OXYTETRACYCLINE
     Indication: PSEUDOMONAS INFECTION

REACTIONS (3)
  - No therapeutic response [None]
  - Nocardiosis [Recovered/Resolved]
  - Therapeutic product ineffective [None]
